FAERS Safety Report 10191245 (Version 1)
Quarter: 2014Q2

REPORT INFORMATION
  Report Type: Spontaneous
  Country: US (occurrence: None)
  Receive Date: 20140522
  Receipt Date: 20140522
  Transmission Date: 20141212
  Serious: Yes (Disabling)
  Sender: FDA-Public Use
  Company Number: None

PATIENT
  Age: 38 Year
  Sex: Female

DRUGS (1)
  1. SUMATRIPTAN 100MG AUROBINDO PHARMA LIMITED [Suspect]
     Indication: MIGRAINE
     Dosage: 1 PILL AS NEEDED FOR MIGRAINE, AS NEEDED
     Dates: start: 20140408, end: 20140520

REACTIONS (2)
  - Throat tightness [None]
  - Hypersensitivity [None]
